FAERS Safety Report 9241195 (Version 1)
Quarter: 2013Q1

REPORT INFORMATION
  Report Type: Spontaneous
  Country: US (occurrence: None)
  Receive Date: 20121120
  Receipt Date: 20121120
  Transmission Date: 20140127
  Serious: No
  Sender: FDA-Public Use
  Company Number: 1000038153

PATIENT
  Age: 69 Year
  Sex: Female

DRUGS (1)
  1. VIIBRYD(VILAZODONE) (TABLETS) [Suspect]
     Indication: DEPRESSION
     Dates: start: 20120418, end: 20120514

REACTIONS (2)
  - Depression [None]
  - Feeling abnormal [None]
